FAERS Safety Report 5215166-3 (Version None)
Quarter: 2007Q1

REPORT INFORMATION
  Report Type: 
  Country: None (occurrence: None)
  Receive Date: 20070122
  Receipt Date: 20070112
  Transmission Date: 20070707
  Serious: Yes (Hospitalization)
  Sender: FDA-Public Use
  Company Number: GB-PFIZER INC-2007003777

PATIENT
  Age: 70 Year
  Sex: Female

DRUGS (5)
  1. CELECOXIB [Suspect]
     Indication: RHEUMATOID ARTHRITIS
     Route: 048
  2. LEFLUNOMIDE [Suspect]
     Indication: RHEUMATOID ARTHRITIS
     Route: 048
     Dates: start: 20050501, end: 20060503
  3. CO-PROXAMOL [Concomitant]
     Indication: RHEUMATOID ARTHRITIS
     Route: 048
  4. CO-TRIAMTERZIDE [Concomitant]
     Indication: FLUID RETENTION
     Route: 048
  5. FERROUS SULFATE TAB [Concomitant]
     Indication: ANAEMIA
     Route: 048

REACTIONS (3)
  - ASTHENIA [None]
  - DYSSTASIA [None]
  - PARAESTHESIA [None]
